FAERS Safety Report 7660317-4 (Version None)
Quarter: 2011Q3

REPORT INFORMATION
  Report Type: 
  Country: None (occurrence: None)
  Receive Date: 20110805
  Receipt Date: 20110803
  Transmission Date: 20111222
  Serious: Yes (Other)
  Sender: FDA-Public Use
  Company Number: US-PFIZER INC-2011178052

PATIENT
  Sex: Female
  Weight: 13.2 kg

DRUGS (4)
  1. AZITHROMYCIN [Concomitant]
     Dosage: UNK
  2. SOLU-MEDROL [Suspect]
     Indication: STATUS ASTHMATICUS
     Dosage: 12.5 MG/KG, UNK
     Route: 042
     Dates: start: 20110731, end: 20110801
  3. XOPENEX [Concomitant]
     Dosage: UNK
  4. MANGANESE [Concomitant]
     Dosage: UNK

REACTIONS (2)
  - PSYCHOTIC DISORDER [None]
  - HALLUCINATION [None]
